FAERS Safety Report 6057120-8 (Version None)
Quarter: 2009Q1

REPORT INFORMATION
  Report Type: 
  Country: None (occurrence: None)
  Receive Date: 20090126
  Receipt Date: 20090126
  Transmission Date: 20090719
  Serious: No
  Sender: FDA-Public Use
  Company Number: None

PATIENT
  Age: 49 Year
  Sex: Female
  Weight: 70.3075 kg

DRUGS (1)
  1. SINGULAIR [Suspect]
     Indication: MULTIPLE ALLERGIES
     Dosage: 10MG DAILY PO
     Route: 048
     Dates: start: 20070201, end: 20081231

REACTIONS (6)
  - CHRONIC SINUSITIS [None]
  - OROPHARYNGEAL PAIN [None]
  - PARANOIA [None]
  - SUICIDAL IDEATION [None]
  - WEIGHT INCREASED [None]
  - WEIGHT LOSS POOR [None]
